FAERS Safety Report 12722106 (Version 3)
Quarter: 2017Q1

REPORT INFORMATION
  Report Type: Spontaneous
  Country: US (occurrence: US)
  Receive Date: 20160907
  Receipt Date: 20170111
  Transmission Date: 20170428
  Serious: Yes (Other)
  Sender: FDA-Public Use
  Company Number: US-BAYER-2016-170162

PATIENT
  Sex: Female
  Weight: 78.5 kg

DRUGS (11)
  1. PHENERGAN [Concomitant]
     Active Substance: PROMETHAZINE HYDROCHLORIDE
     Dosage: UNK
  2. LEVAQUIN [Suspect]
     Active Substance: LEVOFLOXACIN
     Indication: INFECTION
     Dosage: 750 MG, UNK
     Dates: start: 20080331
  3. CIPROFLOXACIN. [Suspect]
     Active Substance: CIPROFLOXACIN
     Indication: INFECTION
     Dosage: 500 MG, UNK
     Dates: start: 20080131
  4. CRESTOR [Concomitant]
     Active Substance: ROSUVASTATIN CALCIUM
     Dosage: UNK
  5. LEVAQUIN [Suspect]
     Active Substance: LEVOFLOXACIN
     Indication: INFECTION
     Dosage: 500 MG, UNK
     Dates: start: 20060416
  6. OMEPRAZOLE. [Concomitant]
     Active Substance: OMEPRAZOLE
     Dosage: UNK
  7. AVELOX [Suspect]
     Active Substance: MOXIFLOXACIN HYDROCHLORIDE
     Indication: INFECTION
     Dosage: 400 MG, UNK
     Dates: start: 20060416
  8. CELEXA [Concomitant]
     Active Substance: CITALOPRAM HYDROBROMIDE
     Dosage: UNK
  9. PERCOCET [Concomitant]
     Active Substance: ACETAMINOPHEN\OXYCODONE HYDROCHLORIDE
     Dosage: UNK
  10. ALBUTEROL. [Concomitant]
     Active Substance: ALBUTEROL
     Dosage: UNK
  11. LORTAB [Concomitant]
     Active Substance: ACETAMINOPHEN\HYDROCODONE BITARTRATE
     Dosage: UNK

REACTIONS (27)
  - Malaise [None]
  - Anxiety [None]
  - Fibromyalgia [None]
  - Panic reaction [None]
  - Pharyngitis [None]
  - Dermatitis [None]
  - Dizziness [None]
  - Vitamin B12 deficiency [None]
  - Pain [None]
  - Chest discomfort [None]
  - Fatigue [None]
  - Hyperlipidaemia [None]
  - Palpitations [None]
  - Nausea [None]
  - Paraesthesia [None]
  - Vitamin D deficiency [None]
  - Sinusitis [None]
  - Somnolence [None]
  - Neuropathy peripheral [None]
  - Chest pain [None]
  - Depression [None]
  - Bronchitis [None]
  - Cough [None]
  - Restless legs syndrome [None]
  - Cholelithiasis [None]
  - Affective disorder [None]
  - Gastrooesophageal reflux disease [None]
